FAERS Safety Report 4751014-3 (Version None)
Quarter: 2005Q3

REPORT INFORMATION
  Report Type: 
  Country: None (occurrence: None)
  Receive Date: 20050824
  Receipt Date: 20050816
  Transmission Date: 20060218
  Serious: Yes (Hospitalization)
  Sender: FDA-Public Use
  Company Number: US-BOEHRINGER INGELHEIM PHARMACEUTICALS, INC.-2005-BP-14215BP

PATIENT
  Sex: Female

DRUGS (3)
  1. MOBIC [Suspect]
     Indication: OSTEOARTHRITIS
     Route: 048
  2. HYDROCHLOROTHIAZIDE [Concomitant]
  3. PROCARDIA [Concomitant]

REACTIONS (5)
  - BLOOD CREATININE INCREASED [None]
  - EOSINOPHILS URINE PRESENT [None]
  - NEPHRITIS INTERSTITIAL [None]
  - RENAL FAILURE ACUTE [None]
  - RENAL TUBULAR NECROSIS [None]
